FAERS Safety Report 16869983 (Version 4)
Quarter: 2020Q4

REPORT INFORMATION
  Report Type: Report from Study
  Country: US (occurrence: US)
  Receive Date: 20190930
  Receipt Date: 20201126
  Transmission Date: 20210113
  Serious: Yes (Other)
  Sender: FDA-Public Use
  Company Number: PHEH2019US039716

PATIENT
  Age: 19 Year
  Sex: Female

DRUGS (2)
  1. AFINITOR [Suspect]
     Active Substance: EVEROLIMUS
     Indication: ASTROCYTOMA, LOW GRADE
     Dosage: 25 MG, QD
     Route: 048
     Dates: start: 20121015
  2. AFINITOR [Suspect]
     Active Substance: EVEROLIMUS
     Dosage: 10 MG, QD
     Route: 048

REACTIONS (11)
  - Drooling [Unknown]
  - Gait disturbance [Unknown]
  - Eating disorder [Unknown]
  - Product dose omission issue [Unknown]
  - Anticonvulsant drug level above therapeutic [Unknown]
  - Dysarthria [Unknown]
  - Weight decreased [Unknown]
  - Mouth ulceration [Recovered/Resolved]
  - Feeling drunk [Unknown]
  - Seizure [Unknown]
  - Drug level increased [Unknown]

NARRATIVE: CASE EVENT DATE: 20190924
